FAERS Safety Report 8591836-4 (Version None)
Quarter: 2012Q3

REPORT INFORMATION
  Report Type: 
  Country: None (occurrence: None)
  Receive Date: 20120814
  Receipt Date: 20120810
  Transmission Date: 20120928
  Serious: Yes (Other)
  Sender: FDA-Public Use
  Company Number: PHHY2012JP033354

PATIENT
  Age: 77 Year
  Sex: Female

DRUGS (1)
  1. AFINITOR [Suspect]
     Indication: METASTATIC RENAL CELL CARCINOMA
     Dosage: UNK
     Route: 048
     Dates: start: 20100510, end: 20100705

REACTIONS (5)
  - NEOPLASM MALIGNANT [None]
  - URTICARIA [None]
  - NEOPLASM PROGRESSION [None]
  - OEDEMA [None]
  - BLISTER [None]
